FAERS Safety Report 5412787-X (Version None)
Quarter: 2007Q3

REPORT INFORMATION
  Report Type: 
  Country: None (occurrence: None)
  Receive Date: 20070813
  Receipt Date: 20070730
  Transmission Date: 20080115
  Serious: Yes (Other)
  Sender: FDA-Public Use
  Company Number: GB-ELI_LILLY_AND_COMPANY-GB200706005986

PATIENT
  Age: 12 Year
  Sex: Male
  Weight: 46 kg

DRUGS (1)
  1. STRATTERA [Suspect]
     Indication: ATTENTION DEFICIT/HYPERACTIVITY DISORDER
     Dosage: 40 MG, UNK
     Route: 048
     Dates: start: 20070601, end: 20070607

REACTIONS (3)
  - ERYTHEMA [None]
  - PRURITUS [None]
  - RASH MACULAR [None]
